FAERS Safety Report 24696829 (Version 2)
Quarter: 2025Q3

REPORT INFORMATION
  Report Type: Report from Study
  Country: US (occurrence: US)
  Receive Date: 20241204
  Receipt Date: 20250809
  Transmission Date: 20251020
  Serious: Yes (Other)
  Sender: ALEXION PHARMACEUTICALS
  Company Number: US-AstraZeneca-CH-00757445A

PATIENT
  Sex: Male
  Weight: 29 kg

DRUGS (1)
  1. SELUMETINIB [Suspect]
     Active Substance: SELUMETINIB
     Indication: Neurofibromatosis
     Dosage: 25 MILLIGRAM, Q12H
     Dates: end: 20241121

REACTIONS (1)
  - Pneumonia [Recovering/Resolving]
